FAERS Safety Report 9373133 (Version 1)
Quarter: 2013Q2

REPORT INFORMATION
  Report Type: Spontaneous
  Country: US (occurrence: US)
  Receive Date: 20130627
  Receipt Date: 20130627
  Transmission Date: 20140414
  Serious: No
  Sender: FDA-Public Use
  Company Number: US-TEVA-415139USA

PATIENT
  Sex: Male

DRUGS (2)
  1. NUVIGIL [Suspect]
     Route: 048
     Dates: start: 2008
  2. THYROID MEDICATION [Concomitant]
     Indication: HYPOTHYROIDISM

REACTIONS (1)
  - Off label use [Unknown]
